FAERS Safety Report 4645686-1 (Version None)
Quarter: 2005Q2

REPORT INFORMATION
  Report Type: 
  Country: None (occurrence: None)
  Receive Date: 20050331
  Receipt Date: 20050218
  Transmission Date: 20051028
  Serious: No
  Sender: FDA-Public Use
  Company Number: 05P-163-0291291-00

PATIENT
  Age: 62 Year
  Sex: Female
  Weight: 127.3 kg

DRUGS (11)
  1. HUMIRA [Suspect]
     Indication: RHEUMATOID ARTHRITIS
     Dosage: 40 MG, 1 IN 2 WK, SUBCUTANEOUS
     Route: 058
     Dates: start: 20040303
  2. UNSPECIFIED LA WEIGHT LOSS MEDICATIONS [Suspect]
     Indication: WEIGHT DECREASED
     Dosage: PER ORAL
     Route: 048
     Dates: start: 20050131, end: 20050218
  3. GABAPENTIN [Concomitant]
  4. ESTROGENS CONJUGATED [Concomitant]
  5. LANSOPRAZOLE [Concomitant]
  6. LEVOTHYROXINE SODIUM [Concomitant]
  7. SINGULAIR [Concomitant]
  8. AMYTRIPTYLINE [Concomitant]
  9. ATORVASTATIN CALCIUM [Concomitant]
  10. BUCINDOLOL HYDROCHLORIDE [Concomitant]
  11. METHOTREXATE [Concomitant]

REACTIONS (3)
  - BURNING SENSATION [None]
  - JOINT SWELLING [None]
  - OEDEMA PERIPHERAL [None]
